FAERS Safety Report 19451331 (Version 1)
Quarter: 2021Q2

REPORT INFORMATION
  Report Type: Spontaneous
  Country: US (occurrence: US)
  Receive Date: 20210623
  Receipt Date: 20210623
  Transmission Date: 20210717
  Serious: Yes (Hospitalization, Other)
  Sender: FDA-Public Use
  Company Number: US-ACS-002046

PATIENT
  Age: 55 Year
  Sex: Female

DRUGS (3)
  1. CEFEPIME [Suspect]
     Active Substance: CEFEPIME HYDROCHLORIDE
     Indication: PNEUMONIA BACTERIAL
     Dosage: CEFEPIME 1 G IV EVERY 8 H; THE DOSE OF CEFEPIME WAS INCREASED THE FOLLOWING DAY TO 1 G IV EVERY 6 H
     Route: 042
  2. FLUCONAZOLE. [Concomitant]
     Active Substance: FLUCONAZOLE
     Dosage: FLUCONAZOLE 200 MG IV EVERY 24 H
     Route: 042
  3. METHYLPREDNISOLONE. [Concomitant]
     Active Substance: METHYLPREDNISOLONE
     Dosage: PREVIOUSLY ADMINISTERED AT THE DOSE OF 125MG IV ONCE FOLLOWED BY 60MG IV EVERY 8H
     Route: 042

REACTIONS (1)
  - Eosinophilic pneumonia [Recovering/Resolving]
